FAERS Safety Report 24256182 (Version 4)
Quarter: 2024Q3

REPORT INFORMATION
  Report Type: Spontaneous
  Country: US (occurrence: US)
  Receive Date: 20240827
  Receipt Date: 20240830
  Transmission Date: 20241016
  Serious: Yes (Life-Threatening, Hospitalization, Other)
  Sender: AMGEN
  Company Number: US-AMGEN-USASP2024169364

PATIENT
  Sex: Female

DRUGS (2)
  1. IMDELLTRA [Suspect]
     Active Substance: TARLATAMAB-DLLE
     Indication: Small cell lung cancer extensive stage
     Dosage: 1 MILLIGRAM
     Route: 065
     Dates: start: 2024, end: 2024
  2. IMDELLTRA [Suspect]
     Active Substance: TARLATAMAB-DLLE
     Dosage: UNK, DAY 15 DOSE
     Route: 065
     Dates: start: 2024, end: 2024

REACTIONS (3)
  - Immune effector cell-associated neurotoxicity syndrome [Unknown]
  - IIIrd nerve paralysis [Not Recovered/Not Resolved]
  - Pituitary enlargement [Unknown]

NARRATIVE: CASE EVENT DATE: 20240101
